FAERS Safety Report 21124838 (Version 30)
Quarter: 2024Q4

REPORT INFORMATION
  Report Type: Report from Study
  Country: US (occurrence: US)
  Receive Date: 20220725
  Receipt Date: 20241224
  Transmission Date: 20250114
  Serious: Yes (Hospitalization)
  Sender: TAKEDA
  Company Number: US-TAKEDA-2020TUS061489

PATIENT
  Age: 49 Year
  Sex: Female

DRUGS (15)
  1. LANADELUMAB [Suspect]
     Active Substance: LANADELUMAB
     Indication: Hereditary angioedema
     Dosage: 300 MILLIGRAM, Q2WEEKS
     Dates: start: 20200616
  2. LANADELUMAB [Suspect]
     Active Substance: LANADELUMAB
     Indication: Immune system disorder
     Dosage: 300 MILLIGRAM, Q2WEEKS
     Dates: start: 20201218
  3. LANADELUMAB [Suspect]
     Active Substance: LANADELUMAB
     Dosage: 300 MILLIGRAM, Q2WEEKS
     Dates: start: 20201220
  4. LANADELUMAB [Suspect]
     Active Substance: LANADELUMAB
     Dosage: 300 MILLIGRAM, Q2WEEKS
     Dates: start: 20201221
  5. LANADELUMAB [Suspect]
     Active Substance: LANADELUMAB
     Dosage: 2 MILLIGRAM, Q2WEEKS
     Dates: start: 20201222
  6. LANADELUMAB [Suspect]
     Active Substance: LANADELUMAB
     Dosage: 300 MILLIGRAM, Q2WEEKS
     Dates: start: 202012
  7. LANADELUMAB [Suspect]
     Active Substance: LANADELUMAB
     Dosage: 300 MILLIGRAM, Q2WEEKS
     Dates: start: 2020
  8. LANADELUMAB [Suspect]
     Active Substance: LANADELUMAB
     Dosage: UNK UNK, Q2WEEKS
     Dates: start: 20211007
  9. LANADELUMAB [Suspect]
     Active Substance: LANADELUMAB
     Dosage: 300 MILLIGRAM, Q2WEEKS
     Dates: start: 20220628
  10. LANADELUMAB [Suspect]
     Active Substance: LANADELUMAB
     Dosage: 2 MILLIGRAM, Q2WEEKS
  11. LANADELUMAB [Suspect]
     Active Substance: LANADELUMAB
     Dosage: 300 MILLIGRAM, Q2WEEKS
  12. ICATIBANT [Suspect]
     Active Substance: ICATIBANT ACETATE
     Indication: Product used for unknown indication
     Dosage: UNK
  13. ICATIBANT [Suspect]
     Active Substance: ICATIBANT ACETATE
  14. RUCONEST [Concomitant]
     Active Substance: CONESTAT ALFA
     Dosage: UNK
  15. ICATIBANT ACETATE [Concomitant]
     Active Substance: ICATIBANT ACETATE
     Dosage: UNK

REACTIONS (10)
  - Hereditary angioedema [Recovered/Resolved]
  - Drug ineffective [Unknown]
  - Fatigue [Unknown]
  - Weight increased [Unknown]
  - Brain fog [Unknown]
  - Insurance issue [Unknown]
  - Inappropriate schedule of product administration [Unknown]
  - Product dose omission issue [Unknown]
  - Weight decreased [Unknown]
  - Injection site pain [Unknown]

NARRATIVE: CASE EVENT DATE: 20201225
